FAERS Safety Report 13133478 (Version 1)
Quarter: 2017Q1

REPORT INFORMATION
  Report Type: Spontaneous
  Country: US (occurrence: US)
  Receive Date: 20170119
  Receipt Date: 20170119
  Transmission Date: 20170428
  Serious: No
  Sender: FDA-Public Use
  Company Number: None

PATIENT
  Sex: Female

DRUGS (1)
  1. OCTREOTIDE 100MCG/ML FRESENIUS KABI [Suspect]
     Active Substance: OCTREOTIDE
     Indication: PRODUCT USED FOR UNKNOWN INDICATION
     Route: 058
     Dates: start: 20161118, end: 20161218

REACTIONS (6)
  - Contusion [None]
  - Fatigue [None]
  - Lethargy [None]
  - Decreased appetite [None]
  - Mood swings [None]
  - Therapy cessation [None]
